FAERS Safety Report 26175933 (Version 1)
Quarter: 2025Q4

REPORT INFORMATION
  Report Type: Spontaneous
  Country: GB (occurrence: GB)
  Receive Date: 20251218
  Receipt Date: 20251218
  Transmission Date: 20260118
  Serious: Yes (Hospitalization, Other)
  Sender: NOVO NORDISK
  Company Number: None

PATIENT
  Age: 72 Year
  Sex: Female
  Weight: 95 kg

DRUGS (1)
  1. OZEMPIC [Suspect]
     Active Substance: SEMAGLUTIDE
     Indication: Insulin resistance
     Dosage: 0.25. 0.50

REACTIONS (4)
  - Yellow skin [Recovering/Resolving]
  - Jaundice cholestatic [Recovering/Resolving]
  - Drug-induced liver injury [Unknown]
  - Product use in unapproved indication [Recovered/Resolved]
